FAERS Safety Report 4863355-X (Version None)
Quarter: 2005Q4

REPORT INFORMATION
  Report Type: 
  Country: None (occurrence: None)
  Receive Date: 20051222
  Receipt Date: 20051214
  Transmission Date: 20060501
  Serious: Yes (Hospitalization)
  Sender: FDA-Public Use
  Company Number: FR-ABBOTT-05P-056-0319785-00

PATIENT
  Age: 60 Year
  Sex: Female

DRUGS (1)
  1. HUMIRA [Suspect]
     Indication: RHEUMATOID ARTHRITIS
     Route: 058
     Dates: start: 20040115, end: 20041015

REACTIONS (3)
  - CUTANEOUS VASCULITIS [None]
  - SKIN ULCER [None]
  - SYSTEMIC LUPUS ERYTHEMATOSUS [None]
